FAERS Safety Report 16994582 (Version 1)
Quarter: 2019Q4

REPORT INFORMATION
  Report Type: Report from Study
  Country: JP (occurrence: JP)
  Receive Date: 20191105
  Receipt Date: 20191105
  Transmission Date: 20200122
  Serious: Yes (Other)
  Sender: FDA-Public Use
  Company Number: JP-ASTELLAS-2008JP004827

PATIENT
  Age: 63 Year
  Sex: Female

DRUGS (34)
  1. LIPITOR [Concomitant]
     Active Substance: ATORVASTATIN CALCIUM
     Indication: PRODUCT USED FOR UNKNOWN INDICATION
     Route: 048
     Dates: start: 20071204, end: 20110607
  2. ACINON [Concomitant]
     Active Substance: NIZATIDINE
     Indication: PRODUCT USED FOR UNKNOWN INDICATION
     Route: 048
     Dates: start: 20110419, end: 20110804
  3. PNEUMOVAX 23 [Concomitant]
     Active Substance: PNEUMOCOCCAL VACCINE, POLYVALENT 23
     Indication: PROPHYLAXIS
     Dosage: 0.5 ML/DAY, UNKNOWN FREQ.
     Route: 065
     Dates: start: 20141104, end: 20141104
  4. REBAMIPIDE [Concomitant]
     Active Substance: REBAMIPIDE
     Indication: GASTRITIS PROPHYLAXIS
     Dosage: 200 MG/DAY, UNKNOWN FREQ.
     Route: 048
     Dates: start: 20150413, end: 20161121
  5. MEDROL [Suspect]
     Active Substance: METHYLPREDNISOLONE
     Indication: LUPUS NEPHRITIS
     Route: 048
  6. MEDROL [Suspect]
     Active Substance: METHYLPREDNISOLONE
     Route: 048
     Dates: start: 20121004, end: 20130918
  7. FLUITRAN [Concomitant]
     Active Substance: TRICHLORMETHIAZIDE
     Indication: HYPERTENSION
     Route: 048
     Dates: start: 20080110, end: 20090107
  8. LAC-B GRANULAR POWDER N [Concomitant]
     Indication: ABDOMINAL DISTENSION
     Dosage: 6 G/DAY, UNKNOWN FREQ.
     Route: 048
     Dates: start: 20130812, end: 20130814
  9. LAC-B GRANULAR POWDER N [Concomitant]
     Dosage: 3 G/DAY, UNKNOWN FREQ.
     Route: 048
     Dates: start: 20130919, end: 20141020
  10. SHAKUYAKUKANZOTO [Concomitant]
     Active Substance: HERBALS
     Indication: MUSCLE SPASMS
     Dosage: 2.5 G/ONCE, AS NEEDED
     Route: 048
     Dates: start: 20160227, end: 20160829
  11. TACROLIMUS. [Suspect]
     Active Substance: TACROLIMUS
     Route: 048
     Dates: start: 20070911, end: 20071022
  12. MUCOSTA [Concomitant]
     Active Substance: REBAMIPIDE
     Indication: PROPHYLAXIS
     Route: 048
  13. ACINON [Concomitant]
     Active Substance: NIZATIDINE
     Indication: PRODUCT USED FOR UNKNOWN INDICATION
     Route: 048
  14. HAEMOLEX [Concomitant]
     Indication: HAEMORRHOIDS
     Dosage: UNK UNK, UNKNOWN FREQ.,ADEQUATE DOSE
     Route: 050
     Dates: start: 20120314, end: 20140623
  15. TACROLIMUS. [Suspect]
     Active Substance: TACROLIMUS
     Route: 048
     Dates: start: 20130725, end: 20160310
  16. TACROLIMUS. [Suspect]
     Active Substance: TACROLIMUS
     Route: 048
     Dates: start: 20160311
  17. MEDROL [Suspect]
     Active Substance: METHYLPREDNISOLONE
     Dosage: 1 MG/DAY, UNKNOWN FREQ.
     Route: 048
     Dates: start: 20130919, end: 20141222
  18. FLUITRAN [Concomitant]
     Active Substance: TRICHLORMETHIAZIDE
     Route: 048
     Dates: start: 20110518, end: 20111104
  19. FOSAMAC [Concomitant]
     Active Substance: ALENDRONATE SODIUM
     Indication: PATHOLOGICAL FRACTURE PROPHYLAXIS
     Route: 048
     Dates: start: 20100330, end: 20150330
  20. HAEMOLEX [Concomitant]
     Dosage: UNK UNK, UNKNOWN FREQ.,ADEQUATE DOSE
     Route: 050
     Dates: start: 20141222, end: 20170112
  21. LAC-B GRANULAR POWDER N [Concomitant]
     Dosage: 3 G/DAY, UNKNOWN FREQ.
     Route: 048
     Dates: start: 20160301
  22. TACROLIMUS. [Suspect]
     Active Substance: TACROLIMUS
     Route: 048
     Dates: start: 20071023, end: 20130724
  23. DIOVAN [Concomitant]
     Active Substance: VALSARTAN
     Indication: PRODUCT USED FOR UNKNOWN INDICATION
     Route: 048
  24. HOCHUEKKITO                        /07973001/ [Concomitant]
     Active Substance: HERBALS
     Indication: DEPRESSION
     Dosage: 7.5 G/DAY, UNKNOWN FREQ.
     Route: 048
     Dates: start: 20150803
  25. MEDROL [Suspect]
     Active Substance: METHYLPREDNISOLONE
     Route: 048
     Dates: start: 20120315, end: 20120516
  26. OMEPRAL                            /00661202/ [Concomitant]
     Active Substance: OMEPRAZOLE SODIUM
     Indication: PRODUCT USED FOR UNKNOWN INDICATION
     Route: 048
     Dates: start: 20110329, end: 20110418
  27. RIZE                               /00624801/ [Concomitant]
     Active Substance: CLOTIAZEPAM
     Indication: INSOMNIA
     Route: 048
     Dates: start: 20110915, end: 20170302
  28. MARZULENE S [Concomitant]
     Active Substance: GLUTAMINE\SODIUM GUALENATE
     Indication: GASTRITIS PROPHYLAXIS
     Dosage: 1.5 G/DAY, UNKNOWN FREQ.
     Route: 048
     Dates: start: 20131224, end: 20150223
  29. PROCTOSEDYL [Concomitant]
     Active Substance: DIBUCAINE HYDROCHLORIDE\HYDROCORTISONE
     Indication: HAEMORRHOIDS
     Dosage: UNK UNK, UNKNOWN FREQ.
     Route: 050
     Dates: start: 20100729, end: 20120314
  30. TACROLIMUS. [Suspect]
     Active Substance: TACROLIMUS
     Indication: LUPUS NEPHRITIS
     Route: 048
     Dates: start: 20070809, end: 20070910
  31. MEDROL [Suspect]
     Active Substance: METHYLPREDNISOLONE
     Route: 048
     Dates: start: 20060608, end: 20090429
  32. MEDROL [Suspect]
     Active Substance: METHYLPREDNISOLONE
     Route: 048
     Dates: start: 20090430, end: 20110804
  33. MEDROL [Suspect]
     Active Substance: METHYLPREDNISOLONE
     Route: 048
     Dates: start: 20120517, end: 20121003
  34. LAC-B GRANULAR POWDER N [Concomitant]
     Indication: PROPHYLAXIS
     Dosage: 3 G/DAY, UNKNOWN FREQ.
     Route: 048
     Dates: start: 20130725, end: 20130811

REACTIONS (11)
  - Lupus nephritis [Recovered/Resolved]
  - Hepatic function abnormal [Recovered/Resolved]
  - Hypertension [Recovered/Resolved]
  - Spinal compression fracture [Recovered/Resolved]
  - Depression [Recovering/Resolving]
  - Irritable bowel syndrome [Recovering/Resolving]
  - Muscle spasms [Recovering/Resolving]
  - Nasopharyngitis [Recovered/Resolved]
  - Abdominal distension [Recovering/Resolving]
  - Insomnia [Recovered/Resolved]
  - Haemorrhoids [Recovered/Resolved]

NARRATIVE: CASE EVENT DATE: 20080807
